FAERS Safety Report 7423877-4 (Version None)
Quarter: 2011Q2

REPORT INFORMATION
  Report Type: 
  Country: None (occurrence: None)
  Receive Date: 20110419
  Receipt Date: 20110414
  Transmission Date: 20111010
  Serious: Yes (Life-Threatening)
  Sender: FDA-Public Use
  Company Number: FR-ABBOTT-11P-056-0719003-00

PATIENT
  Age: 71 Year
  Sex: Female

DRUGS (2)
  1. DEPAKENE [Suspect]
     Indication: EPILEPSY
     Route: 048
     Dates: start: 20110309, end: 20110315
  2. DEPAKENE [Suspect]
     Route: 048
     Dates: start: 20110301, end: 20110309

REACTIONS (4)
  - COGNITIVE DISORDER [None]
  - ACCIDENTAL OVERDOSE [None]
  - PSYCHOMOTOR SKILLS IMPAIRED [None]
  - CONFUSIONAL STATE [None]
